FAERS Safety Report 5448289-4 (Version None)
Quarter: 2007Q3

REPORT INFORMATION
  Report Type: 
  Country: None (occurrence: None)
  Receive Date: 20070911
  Receipt Date: 20070904
  Transmission Date: 20080115
  Serious: Yes (Other)
  Sender: FDA-Public Use
  Company Number: PHMT2007CA01542

PATIENT
  Age: 18 Year
  Sex: Female
  Weight: 83 kg

DRUGS (5)
  1. GLEEVEC [Suspect]
     Indication: CHRONIC MYELOID LEUKAEMIA
     Dosage: 400 MG, QD
     Route: 048
     Dates: start: 20060901, end: 20070101
  2. INTERFERON [Concomitant]
     Indication: WHITE BLOOD CELL COUNT
     Dosage: UNK, UNK
     Dates: start: 20070201, end: 20070615
  3. HYDROXYUREA [Concomitant]
     Dosage: UNK, UNK
  4. CEFTRIAXONE [Concomitant]
     Indication: OSTEOMYELITIS
     Dosage: UNK, UNK
  5. FRAGMIN [Concomitant]
     Indication: DEEP VEIN THROMBOSIS
     Dosage: UNK, PICC

REACTIONS (5)
  - DRUG EXPOSURE DURING PREGNANCY [None]
  - LEUKOSTASIS [None]
  - PLACENTAL DISORDER [None]
  - PREMATURE LABOUR [None]
  - WHITE BLOOD CELL COUNT INCREASED [None]
